FAERS Safety Report 8172237-X (Version None)
Quarter: 2012Q1

REPORT INFORMATION
  Report Type: 
  Country: None (occurrence: None)
  Receive Date: 20120229
  Receipt Date: 20120227
  Transmission Date: 20120608
  Serious: Yes (Death, Hospitalization, Other)
  Sender: FDA-Public Use
  Company Number: US-BRISTOL-MYERS SQUIBB COMPANY-15555113

PATIENT
  Age: 76 Year
  Sex: Female
  Weight: 54 kg

DRUGS (22)
  1. LISINOPRIL [Concomitant]
  2. HYDROCHLOROTHIAZIDE [Concomitant]
     Dates: start: 20100608
  3. ZOFRAN [Concomitant]
     Dates: start: 20100628
  4. VISTARIL [Concomitant]
     Dates: start: 20100412
  5. ADVAIR DISKUS 100/50 [Concomitant]
  6. BEVACIZUMAB [Suspect]
     Indication: NON-SMALL CELL LUNG CANCER
     Route: 042
     Dates: start: 20100628, end: 20100628
  7. ZOMETA [Concomitant]
     Indication: METASTASIS
     Dates: start: 20100628
  8. ALBUTEROL [Concomitant]
     Dates: start: 20100408
  9. CARBOPLATIN [Suspect]
     Indication: NON-SMALL CELL LUNG CANCER
     Dosage: 6DF:6AUC
     Route: 042
     Dates: start: 20100628, end: 20100628
  10. RESTORIL [Concomitant]
     Dates: start: 20100608
  11. PACLITAXEL [Suspect]
     Indication: NON-SMALL CELL LUNG CANCER
     Route: 042
     Dates: start: 20100628, end: 20100628
  12. ZANTAC [Concomitant]
     Indication: GASTROOESOPHAGEAL REFLUX DISEASE
     Dates: start: 20100628
  13. AMLODIPINE BESYLATE [Concomitant]
  14. ZOMETA [Concomitant]
     Indication: BONE PAIN
     Dates: start: 20100628
  15. DECADRON [Concomitant]
     Indication: VOMITING
     Dates: start: 20100628
  16. BENADRYL [Concomitant]
     Dates: start: 20100628
  17. MEGACE [Concomitant]
     Dates: start: 20100608
  18. ASPIRIN [Concomitant]
     Dates: start: 20100408
  19. POTASSIUM CHLORIDE [Concomitant]
  20. TEMAZEPAM [Concomitant]
  21. HYDROXYZINE [Concomitant]
  22. NUCYNTA [Concomitant]

REACTIONS (6)
  - DEHYDRATION [None]
  - CARDIO-RESPIRATORY ARREST [None]
  - VOMITING [None]
  - HYPOTENSION [None]
  - NEUTROPENIA [None]
  - DIARRHOEA [None]
